FAERS Safety Report 10351787 (Version 3)
Quarter: 2015Q3

REPORT INFORMATION
  Report Type: Report from Study
  Country: DE (occurrence: DE)
  Receive Date: 20140730
  Receipt Date: 20150708
  Transmission Date: 20151125
  Serious: Yes (Hospitalization)
  Sender: FDA-Public Use
  Company Number: DE-INCYTE CORPORATION-2014IN002072

PATIENT
  Sex: Female
  Weight: 53 kg

DRUGS (21)
  1. IBUPROFEN. [Concomitant]
     Active Substance: IBUPROFEN
     Indication: ARTHRALGIA
     Dosage: 1200 MG, PERDAY
     Route: 065
     Dates: start: 20140108, end: 20140203
  2. HYDREA [Concomitant]
     Active Substance: HYDROXYUREA
     Indication: MYELOFIBROSIS
     Dosage: 1000 MG,PERDAY
     Route: 065
     Dates: start: 20140502
  3. INCB018424 [Suspect]
     Active Substance: RUXOLITINIB
     Dosage: 2 DF (20 MG EACH), QD
     Route: 048
     Dates: start: 20140422, end: 20140424
  4. INCB018424 [Suspect]
     Active Substance: RUXOLITINIB
     Dosage: 2 DF (20 MG), QD
     Route: 048
     Dates: start: 20140609, end: 20150317
  5. HYDREA [Concomitant]
     Active Substance: HYDROXYUREA
     Indication: WHITE BLOOD CELL COUNT INCREASED
     Dosage: 500 MG, UNK
     Route: 065
     Dates: start: 20140822
  6. NOVALGIN [Concomitant]
     Active Substance: METAMIZOLE SODIUM
     Indication: PAIN IN EXTREMITY
     Dates: start: 20140512
  7. INCB018424 [Suspect]
     Active Substance: RUXOLITINIB
     Dosage: 2 DF (15 MG EACH), QD
     Route: 048
     Dates: start: 20140425, end: 20140427
  8. SINUPRET [Concomitant]
     Active Substance: HERBALS
     Indication: UPPER RESPIRATORY TRACT INFECTION
     Dosage: 3 DF, QD (3 X 1)
     Route: 065
     Dates: start: 20140902
  9. INCB018424 [Suspect]
     Active Substance: RUXOLITINIB
     Dosage: 2 DF 5 MG + 2 DF 20 MG PER DAY (50 MG)
     Route: 048
     Dates: start: 20140325, end: 20140421
  10. INCB018424 [Suspect]
     Active Substance: RUXOLITINIB
     Dosage: 4 DF (5 MG EACH), QD
     Route: 048
     Dates: start: 20140428, end: 20140429
  11. CLARITHROMYCIN. [Concomitant]
     Active Substance: CLARITHROMYCIN
     Indication: BRONCHITIS
     Dosage: 1000 MG PERDAY, QD
     Route: 065
     Dates: start: 20131105, end: 20131115
  12. OLYNTH [Concomitant]
     Active Substance: XYLOMETAZOLINE HYDROCHLORIDE
     Indication: UPPER RESPIRATORY TRACT INFECTION
     Route: 065
     Dates: start: 20140722
  13. INCB018424 [Suspect]
     Active Substance: RUXOLITINIB
     Indication: MYELOFIBROSIS
     Dosage: 2 DF (15 MG EACH), QD
     Route: 048
     Dates: start: 20131021
  14. INCB018424 [Suspect]
     Active Substance: RUXOLITINIB
     Dosage: 2 DF (20 MG EACH), QD
     Route: 048
     Dates: start: 20131127, end: 20140324
  15. INCB018424 [Suspect]
     Active Substance: RUXOLITINIB
     Dosage: 2 DF (10 MG), QD
     Route: 048
     Dates: start: 20150415
  16. DICLOFENAC [Concomitant]
     Active Substance: DICLOFENAC
     Indication: ARTHRALGIA
     Dosage: UNK
     Route: 065
     Dates: start: 20131218
  17. CEFUROXIME. [Concomitant]
     Active Substance: CEFUROXIME
     Indication: UPPER RESPIRATORY TRACT INFECTION
     Dosage: 1500 MG PER DAY, QD
     Route: 065
     Dates: start: 20140722, end: 20140728
  18. INCB018424 [Suspect]
     Active Substance: RUXOLITINIB
     Dosage: 2 DF (15 MG), QD
     Route: 048
     Dates: start: 20150318, end: 20150414
  19. PANTOZOL [Concomitant]
     Active Substance: PANTOPRAZOLE SODIUM
     Indication: PROPHYLAXIS
     Dosage: 40 MG, PERDAY
     Route: 065
     Dates: start: 20140430
  20. INCB018424 [Suspect]
     Active Substance: RUXOLITINIB
     Dosage: 2 DF (5 MG EACH), QD
     Route: 048
     Dates: start: 20140430, end: 20140502
  21. ASPIRIN. [Concomitant]
     Active Substance: ASPIRIN
     Dosage: 100 MG, PERDAY
     Route: 065
     Dates: end: 20140401

REACTIONS (2)
  - Fall [Recovering/Resolving]
  - Humerus fracture [Recovering/Resolving]

NARRATIVE: CASE EVENT DATE: 20140502
